FAERS Safety Report 7043040-9 (Version None)
Quarter: 2010Q3

REPORT INFORMATION
  Report Type: 
  Country: None (occurrence: None)
  Receive Date: 20100930
  Receipt Date: 20100825
  Transmission Date: 20110219
  Serious: Yes (Other)
  Sender: FDA-Public Use
  Company Number: M-10-023

PATIENT
  Sex: Male

DRUGS (1)
  1. RIFAMPIN [Suspect]
     Dosage: ORAL (047)
     Route: 048

REACTIONS (2)
  - CHROMATURIA [None]
  - PRODUCT SUBSTITUTION ISSUE [None]
